FAERS Safety Report 6226148-7 (Version None)
Quarter: 2009Q2

REPORT INFORMATION
  Report Type: 
  Country: None (occurrence: None)
  Receive Date: 20090610
  Receipt Date: 20090512
  Transmission Date: 20091009
  Serious: Yes (Hospitalization)
  Sender: FDA-Public Use
  Company Number: 2009S1008804

PATIENT
  Age: 21 Year
  Sex: Male

DRUGS (3)
  1. AZATHIOPRINE [Suspect]
     Indication: COLITIS ULCERATIVE
     Dosage: 25 MG;DAILY; 50 MG;DAILY; 75 MG;DAILY; 100 MG;DAILY;  125 MG;DAILY; 150 MG; DAILY
     Dates: start: 20050901
  2. PREDNISOLONE [Concomitant]
  3. MESALAZINE [Concomitant]

REACTIONS (5)
  - COLITIS ULCERATIVE [None]
  - CONDITION AGGRAVATED [None]
  - LEUKOPENIA [None]
  - PNEUMOCYSTIS JIROVECI PNEUMONIA [None]
  - PNEUMOMEDIASTINUM [None]
